FAERS Safety Report 8911084 (Version 1)
Quarter: 2012Q4

REPORT INFORMATION
  Report Type: Spontaneous
  Country: US (occurrence: None)
  Receive Date: 20121114
  Receipt Date: 20121114
  Transmission Date: 20130627
  Serious: No
  Sender: FDA-Public Use
  Company Number: None

PATIENT
  Age: 47 Year
  Sex: Male
  Weight: 42.18 kg

DRUGS (8)
  1. ALLOPURINOL [Suspect]
     Dates: start: 20100712, end: 20100817
  2. AMLODIPINE BESYLATE W/BENAZEPRIL HYDROCHLOR. [Concomitant]
  3. BENZONATATE [Concomitant]
  4. GEMFIBROZIL [Concomitant]
  5. GUAIFENESIN [Concomitant]
  6. HEPARIN [Concomitant]
  7. LANSOPRAZOLE [Concomitant]
  8. OXYCODONE [Concomitant]

REACTIONS (15)
  - Granulomatous liver disease [None]
  - Cholestasis [None]
  - Gallbladder disorder [None]
  - Abdominal wall disorder [None]
  - Oedema [None]
  - Hypotension [None]
  - Renal failure acute [None]
  - Epstein-Barr virus antibody positive [None]
  - Cytomegalovirus test positive [None]
  - Lethargy [None]
  - Pyrexia [None]
  - Chills [None]
  - Rash pruritic [None]
  - Rash maculo-papular [None]
  - Incorrect dose administered [None]
